FAERS Safety Report 16111137 (Version 1)
Quarter: 2019Q2

REPORT INFORMATION
  Report Type: Spontaneous
  Country: US (occurrence: US)
  Receive Date: 20190322
  Receipt Date: 20190322
  Transmission Date: 20190711
  Serious: Yes (Hospitalization)
  Sender: FDA-Public Use
  Company Number: None

PATIENT
  Age: 35 Year
  Sex: Male

DRUGS (19)
  1. LEVEMIR [Concomitant]
     Active Substance: INSULIN DETEMIR
  2. REVATIO [Suspect]
     Active Substance: SILDENAFIL CITRATE
     Indication: PULMONARY ARTERIAL HYPERTENSION
     Route: 048
     Dates: start: 20171128
  3. MONTELUKST [Concomitant]
  4. PULMICORT TURBUHALER [Concomitant]
     Active Substance: BUDESONIDE
  5. METOLAZONE. [Concomitant]
     Active Substance: METOLAZONE
  6. LEVALBUTEROL NEB [Concomitant]
  7. ZANTAC [Concomitant]
     Active Substance: RANITIDINE HYDROCHLORIDE
  8. PREDNISONE. [Concomitant]
     Active Substance: PREDNISONE
  9. TRACLEER [Concomitant]
     Active Substance: BOSENTAN
  10. LEVEMIR [Concomitant]
     Active Substance: INSULIN DETEMIR
  11. TAMADOL [Concomitant]
     Active Substance: TRAMADOL HYDROCHLORIDE
  12. OSELTAMIVIR [Concomitant]
     Active Substance: OSELTAMIVIR
  13. MELOXICAM. [Concomitant]
     Active Substance: MELOXICAM
  14. METFORMIN [Concomitant]
     Active Substance: METFORMIN HYDROCHLORIDE
  15. NOVOLOG [Concomitant]
     Active Substance: INSULIN ASPART
  16. POT CL MICRO [Concomitant]
  17. ONETOUCH [Concomitant]
  18. FUROSEMIDE. [Concomitant]
     Active Substance: FUROSEMIDE
  19. GABAPENTIN. [Concomitant]
     Active Substance: GABAPENTIN

REACTIONS (2)
  - Influenza [None]
  - Drug ineffective [None]
